FAERS Safety Report 14261824 (Version 1)
Quarter: 2017Q4

REPORT INFORMATION
  Report Type: Spontaneous
  Country: FR (occurrence: FR)
  Receive Date: 20171208
  Receipt Date: 20171208
  Transmission Date: 20180321
  Serious: Yes (Hospitalization)
  Sender: FDA-Public Use
  Company Number: FR-AUROBINDO-AUR-APL-2017-44447

PATIENT
  Age: 65 Year
  Sex: Male

DRUGS (9)
  1. KARDEGIC [Suspect]
     Active Substance: ASPIRIN DL-LYSINE
     Indication: PRODUCT USED FOR UNKNOWN INDICATION
     Dosage: 75 MG, UNK
     Route: 048
  2. FORLAX [Suspect]
     Active Substance: POLYETHYLENE GLYCOL 4000
     Indication: PRODUCT USED FOR UNKNOWN INDICATION
     Dosage: NOT REPORTED
     Route: 065
  3. LAMOTRIGINE. [Suspect]
     Active Substance: LAMOTRIGINE
     Indication: EPILEPSY
     Dosage: 50 MG, UNK
     Route: 048
     Dates: start: 2016, end: 20171019
  4. LOXEN                              /00639802/ [Suspect]
     Active Substance: NICARDIPINE HYDROCHLORIDE
     Indication: HYPERTENSION
     Dosage: 100 MG, DAILY
     Route: 048
     Dates: start: 20161208
  5. RAMIPRIL. [Suspect]
     Active Substance: RAMIPRIL
     Indication: HYPERTENSION
     Dosage: DAILY
     Route: 048
     Dates: start: 20161208
  6. TAHOR [Suspect]
     Active Substance: ATORVASTATIN CALCIUM
     Indication: DYSLIPIDAEMIA
     Dosage: DAILY
     Route: 048
     Dates: start: 2016
  7. RISPERDAL [Suspect]
     Active Substance: RISPERIDONE
     Indication: ABNORMAL BEHAVIOUR
     Dosage: UNK
     Route: 048
     Dates: start: 201707
  8. XANAX [Suspect]
     Active Substance: ALPRAZOLAM
     Indication: PRODUCT USED FOR UNKNOWN INDICATION
     Dosage: 0.25 MG, UNK
     Route: 048
     Dates: start: 2016
  9. LAMICTAL [Suspect]
     Active Substance: LAMOTRIGINE
     Indication: EPILEPSY
     Dosage: UNK
     Route: 048
     Dates: start: 20161017

REACTIONS (2)
  - Aplastic anaemia [Unknown]
  - Pancytopenia [Unknown]

NARRATIVE: CASE EVENT DATE: 20171017
